FAERS Safety Report 8312347-7 (Version None)
Quarter: 2012Q2

REPORT INFORMATION
  Report Type: 
  Country: None (occurrence: None)
  Receive Date: 20120425
  Receipt Date: 20120411
  Transmission Date: 20120825
  Serious: Yes (Other)
  Sender: FDA-Public Use
  Company Number: BR-AMGEN-BRASP2012015426

PATIENT
  Age: 59 Year
  Sex: Female
  Weight: 80 kg

DRUGS (15)
  1. PREDNISONE TAB [Concomitant]
     Indication: RHEUMATOID ARTHRITIS
  2. ARAVA [Concomitant]
     Indication: ARTHRITIS
     Dosage: 5 MG, 1X/DAY
     Route: 048
     Dates: start: 20101001
  3. ATENOLOL [Concomitant]
     Indication: HYPERTENSION
     Dosage: 50 MG, 2X/DAY
     Route: 048
  4. ENBREL [Suspect]
     Indication: RHEUMATOID ARTHRITIS
     Dosage: 50 MG, WEEKLY
     Route: 058
     Dates: start: 20120218
  5. ARAVA [Concomitant]
     Indication: RHEUMATOID ARTHRITIS
     Dosage: 20 MG, 1X/DAY
     Route: 048
     Dates: start: 20101101
  6. GLYBURIDE [Concomitant]
     Indication: HYPERTENSION
     Dosage: 5 MG, 3X/DAY
     Route: 048
  7. GLYBURIDE [Concomitant]
     Indication: DIABETES MELLITUS
  8. CAPTOPRIL [Concomitant]
     Indication: DIABETES MELLITUS
  9. VITAMIN D [Concomitant]
     Indication: OSTEOPOROSIS PROPHYLAXIS
     Dosage: 800 IU, A DAY
     Route: 048
     Dates: start: 20101021
  10. PREDNISONE TAB [Concomitant]
     Indication: ARTHRITIS
     Dosage: 5 MG, 1X/DAY
     Route: 048
     Dates: start: 20020701
  11. CAPTOPRIL [Concomitant]
     Indication: HYPERTENSION
     Dosage: 50 MG, 2X/DAY
     Route: 048
  12. SIMVASTATIN [Concomitant]
     Indication: RHEUMATOID ARTHRITIS
     Dosage: 20 MG, ONCE AT NIGHT
     Route: 048
  13. ATENOLOL [Concomitant]
     Indication: DIABETES MELLITUS
  14. CALCIUM CARBONATE [Concomitant]
     Indication: OSTEOPOROSIS PROPHYLAXIS
     Dosage: 500 MG, ONCE DAILY
     Route: 048
     Dates: start: 20101021
  15. VITAMIN D [Concomitant]
     Dosage: 800 IU, A DAY
     Route: 048
     Dates: start: 20101021

REACTIONS (6)
  - PAIN IN EXTREMITY [None]
  - RHEUMATOID ARTHRITIS [None]
  - LIGAMENT SPRAIN [None]
  - JOINT SWELLING [None]
  - JOINT WARMTH [None]
  - TENOSYNOVITIS [None]
